FAERS Safety Report 7571188-9 (Version None)
Quarter: 2011Q2

REPORT INFORMATION
  Report Type: 
  Country: None (occurrence: None)
  Receive Date: 20110624
  Receipt Date: 20110613
  Transmission Date: 20111010
  Serious: Yes (Other)
  Sender: FDA-Public Use
  Company Number: CO-ELI_LILLY_AND_COMPANY-CO201106005667

PATIENT
  Age: 72 Year
  Sex: Female

DRUGS (10)
  1. INSULIN NPH                        /01223208/ [Concomitant]
     Dosage: 45 IU, EACH MORNING
  2. BYETTA [Suspect]
     Dosage: 5 UG, BID
     Route: 058
  3. LOVASTATIN [Concomitant]
  4. OMEPRAZOLE [Concomitant]
  5. CALCIUM W/VITAMIN D NOS [Concomitant]
  6. FLUNARIZINE [Concomitant]
  7. INSULIN NPH                        /01223208/ [Concomitant]
     Dosage: 40 IU, EACH MORNING
  8. CYCLOSPORINE [Concomitant]
  9. BYETTA [Suspect]
     Indication: TYPE 2 DIABETES MELLITUS
     Dosage: 5 UG, BID
     Route: 058
     Dates: start: 20110610
  10. INSULIN NPH                        /01223208/ [Concomitant]
     Dosage: 10 IU, EACH EVENING

REACTIONS (6)
  - NAUSEA [None]
  - FALL [None]
  - HYPOGLYCAEMIA [None]
  - DIZZINESS [None]
  - SYNCOPE [None]
  - OFF LABEL USE [None]
